FAERS Safety Report 9772721 (Version 2)
Quarter: 2013Q4

REPORT INFORMATION
  Report Type: Spontaneous
  Country: US (occurrence: US)
  Receive Date: 20131219
  Receipt Date: 20131219
  Transmission Date: 20140711
  Serious: Yes (Hospitalization)
  Sender: FDA-Public Use
  Company Number: US-BIOMARINAP-US-2013-100603

PATIENT
  Sex: Female

DRUGS (2)
  1. KUVAN [Suspect]
     Indication: TETRAHYDROBIOPTERIN DEFICIENCY
     Dosage: 50 MG, BID
     Route: 048
  2. SABRIL [Concomitant]
     Indication: PRODUCT USED FOR UNKNOWN INDICATION
     Dosage: 1500 MG, QD

REACTIONS (2)
  - Convulsion [Unknown]
  - Drug ineffective [Unknown]
